FAERS Safety Report 6566862-7 (Version None)
Quarter: 2010Q1

REPORT INFORMATION
  Report Type: 
  Country: None (occurrence: None)
  Receive Date: 20100202
  Receipt Date: 20100122
  Transmission Date: 20100710
  Serious: Yes (Death)
  Sender: FDA-Public Use
  Company Number: B0628846A

PATIENT
  Age: 52 Year
  Sex: Male
  Weight: 73 kg

DRUGS (4)
  1. ARIXTRA [Suspect]
     Indication: THROMBOSIS PROPHYLAXIS
     Dosage: 2.5MG UNKNOWN
     Route: 065
     Dates: start: 20090309, end: 20090311
  2. COMPRESSION STOCKINGS [Concomitant]
     Indication: THROMBOSIS PROPHYLAXIS
     Dates: start: 20090301, end: 20090329
  3. CALCIPARINE [Concomitant]
     Indication: THROMBOSIS PROPHYLAXIS
     Dosage: 1ML TWICE PER DAY
     Route: 065
     Dates: start: 20090317, end: 20090329
  4. ANTIVITAMINS K [Concomitant]
     Indication: THROMBOSIS PROPHYLAXIS
     Dosage: 10MG PER DAY
     Route: 065
     Dates: start: 20090310, end: 20090329

REACTIONS (2)
  - BLOOD CREATININE INCREASED [None]
  - DEATH [None]
